FAERS Safety Report 5549653-5 (Version None)
Quarter: 2007Q4

REPORT INFORMATION
  Report Type: 
  Country: None (occurrence: None)
  Receive Date: 20071128
  Receipt Date: 20070828
  Transmission Date: 20080405
  Serious: Yes (Other)
  Sender: FDA-Public Use
  Company Number: 2007072037

PATIENT
  Sex: Female

DRUGS (5)
  1. EXUBERA [Suspect]
  2. NOVOLOG [Concomitant]
  3. INSULIN DETEMIR (INSULIN DETEMIR) [Concomitant]
  4. BYETTA [Concomitant]
  5. METFORMIN HCL [Concomitant]

REACTIONS (2)
  - ASTHMA [None]
  - CHEST PAIN [None]
